FAERS Safety Report 14412145 (Version 1)
Quarter: 2018Q1

REPORT INFORMATION
  Report Type: Spontaneous
  Country: US (occurrence: US)
  Receive Date: 20180117
  Receipt Date: 20180117
  Transmission Date: 20180509
  Serious: Yes (Other)
  Sender: FDA-Public Use
  Company Number: None

PATIENT
  Age: 72 Year
  Sex: Female
  Weight: 65.2 kg

DRUGS (1)
  1. GAZYVA [Suspect]
     Active Substance: OBINUTUZUMAB
     Indication: CHRONIC LYMPHOCYTIC LEUKAEMIA
     Dosage: ?          OTHER FREQUENCY:ONCE;?
     Route: 041

REACTIONS (12)
  - Feeling hot [None]
  - Dizziness [None]
  - Hyperhidrosis [None]
  - Blood pressure increased [None]
  - Chills [None]
  - Infusion related reaction [None]
  - Back pain [None]
  - Vomiting [None]
  - Blood pressure decreased [None]
  - Pallor [None]
  - Palpitations [None]
  - Chest discomfort [None]

NARRATIVE: CASE EVENT DATE: 20171228
